FAERS Safety Report 6259340-6 (Version None)
Quarter: 2009Q3

REPORT INFORMATION
  Report Type: 
  Country: None (occurrence: None)
  Receive Date: 20090707
  Receipt Date: 20090630
  Transmission Date: 20100115
  Serious: Yes (Hospitalization)
  Sender: FDA-Public Use
  Company Number: AU-SANOFI-SYNTHELABO-F01200900624

PATIENT
  Sex: Female
  Weight: 59.3 kg

DRUGS (7)
  1. KYTRIL [Concomitant]
  2. DEXAMETHASONE [Concomitant]
  3. PERINDOPRIL [Concomitant]
  4. OXALIPLATIN [Suspect]
     Indication: COLORECTAL CANCER METASTATIC
     Route: 041
     Dates: start: 20090616, end: 20090616
  5. LEUCOVORIN CALCIUM [Suspect]
     Route: 041
     Dates: start: 20090616, end: 20090616
  6. FLUOROURACIL [Suspect]
     Indication: COLORECTAL CANCER METASTATIC
     Route: 042
     Dates: start: 20090616
  7. AFLIBERCEPT [Suspect]
     Indication: COLORECTAL CANCER METASTATIC
     Route: 041
     Dates: start: 20090616, end: 20090616

REACTIONS (1)
  - REVERSIBLE POSTERIOR LEUKOENCEPHALOPATHY SYNDROME [None]
